FAERS Safety Report 10798928 (Version 2)
Quarter: 2015Q1

REPORT INFORMATION
  Report Type: Spontaneous
  Country: US (occurrence: US)
  Receive Date: 20150216
  Receipt Date: 20150216
  Transmission Date: 20150721
  Serious: No
  Sender: FDA-Public Use
  Company Number: US-ALLERGAN-1406618US

PATIENT
  Sex: Female

DRUGS (5)
  1. REFRESH LACRI-LUBE [Suspect]
     Active Substance: MINERAL OIL\PETROLATUM
     Indication: DRY EYE
     Dosage: ^3- 4 TIMES A DAY
  2. SYSTANE (HYPROMELLOSE 2910 (4000 MPA.S)) [Concomitant]
     Active Substance: HYPROMELLOSE 2910 (4000 MPA.S)
     Indication: DRY EYE
     Dosage: UNK
     Route: 047
  3. RESTASIS [Suspect]
     Active Substance: CYCLOSPORINE
     Indication: CORNEAL LESION
     Dosage: UNK
     Route: 047
     Dates: start: 201403
  4. TERA-TEARS [Concomitant]
     Indication: DRY EYE
     Dosage: UNK
  5. LOTEMAX [Suspect]
     Active Substance: LOTEPREDNOL ETABONATE
     Indication: CORNEAL LESION
     Dosage: UNK UNK, TID
     Route: 047

REACTIONS (1)
  - Vision blurred [Unknown]
